FAERS Safety Report 8590010-5 (Version None)
Quarter: 2012Q3

REPORT INFORMATION
  Report Type: 
  Country: None (occurrence: None)
  Receive Date: 20120813
  Receipt Date: 20120802
  Transmission Date: 20120928
  Serious: Yes (Other)
  Sender: FDA-Public Use
  Company Number: US-ASTRAZENECA-2012SE48799

PATIENT
  Age: 49 Year
  Sex: Male

DRUGS (2)
  1. OMEPRAZOLE [Suspect]
     Route: 048
  2. NEXIUM [Suspect]
     Route: 048

REACTIONS (4)
  - OESOPHAGEAL FOOD IMPACTION [None]
  - DYSPEPSIA [None]
  - DRUG INEFFECTIVE [None]
  - EXOPHTHALMOS [None]
